FAERS Safety Report 8313634-9 (Version None)
Quarter: 2012Q2

REPORT INFORMATION
  Report Type: 
  Country: None (occurrence: None)
  Receive Date: 20120426
  Receipt Date: 20120419
  Transmission Date: 20120825
  Serious: Yes (Death, Hospitalization, Other)
  Sender: FDA-Public Use
  Company Number: US-ASTELLAS-2012US003173

PATIENT
  Sex: Female
  Weight: 54 kg

DRUGS (6)
  1. DECADRON [Concomitant]
     Indication: NAUSEA
     Dosage: 4 MG, BID
     Route: 048
  2. KEPPRA [Concomitant]
     Indication: PRODUCT USED FOR UNKNOWN INDICATION
     Dosage: 500 MG, BID
     Route: 048
  3. ERLOTINIB HYDROCHLORIDE [Suspect]
     Indication: LUNG NEOPLASM MALIGNANT
     Dosage: 150 MG, UID/QD
     Route: 048
     Dates: start: 20120220, end: 20120323
  4. CETURA [Concomitant]
     Indication: ANXIETY
     Dosage: 2 MG, UID/QD
     Route: 048
  5. TRAMADOL HCL [Concomitant]
     Indication: PAIN
     Dosage: 50 MG, BID
     Route: 065
  6. COREG [Concomitant]
     Indication: HYPERTENSION
     Dosage: UNK, 3.25, BID
     Route: 048

REACTIONS (5)
  - URINARY TRACT INFECTION [None]
  - HYPONATRAEMIA [None]
  - METASTATIC NEOPLASM [None]
  - CEREBROVASCULAR ACCIDENT [None]
  - CONVULSION [None]
